FAERS Safety Report 10218590 (Version 1)
Quarter: 2014Q2

REPORT INFORMATION
  Report Type: Spontaneous
  Country: US (occurrence: US)
  Receive Date: 20140605
  Receipt Date: 20140605
  Transmission Date: 20141212
  Serious: Yes (Other)
  Sender: FDA-Public Use
  Company Number: US-PFIZER INC-2014150452

PATIENT
  Age: 84 Year
  Sex: Female
  Weight: 63.5 kg

DRUGS (4)
  1. LEVOXYL [Suspect]
     Indication: HYPOTHYROIDISM
     Dosage: 25 UG, DAILY
  2. LEVOXYL [Suspect]
     Dosage: 25 UG, DAILY
     Dates: start: 201403
  3. AMLODIPINE [Concomitant]
     Indication: HYPERTENSION
     Dosage: 5 MG, DAILY
  4. METOPROLOL [Concomitant]
     Indication: HYPERTENSION
     Dosage: 25 MG, 2X/DAY

REACTIONS (4)
  - Blood pressure diastolic increased [Unknown]
  - Condition aggravated [Unknown]
  - Heart rate increased [Unknown]
  - Blood thyroid stimulating hormone increased [Unknown]
